FAERS Safety Report 23306195 (Version 2)
Quarter: 2024Q4

REPORT INFORMATION
  Report Type: Report from Study
  Country: US (occurrence: US)
  Receive Date: 20231218
  Receipt Date: 20241110
  Transmission Date: 20250114
  Serious: Yes (Other)
  Sender: ABBVIE
  Company Number: US-ABBVIE-5542870

PATIENT
  Sex: Female

DRUGS (1)
  1. LUMIGAN [Suspect]
     Active Substance: BIMATOPROST
     Indication: Product used for unknown indication
     Dosage: ONE DROP IN EACH EYE  EVERY NIGHT AT BEDTIME
     Route: 047

REACTIONS (4)
  - Macular degeneration [Unknown]
  - Visual impairment [Unknown]
  - Glaucoma [Unknown]
  - Eye disorder [Unknown]
